FAERS Safety Report 16705355 (Version 1)
Quarter: 2019Q3

REPORT INFORMATION
  Report Type: Spontaneous
  Country: JP (occurrence: JP)
  Receive Date: 20190815
  Receipt Date: 20190815
  Transmission Date: 20191004
  Serious: Yes (Other)
  Sender: FDA-Public Use
  Company Number: JP-ACTELION-A-CH2019-194262

PATIENT

DRUGS (3)
  1. SILDENAFIL. [Concomitant]
     Active Substance: SILDENAFIL
  2. BOSENTAN. [Suspect]
     Active Substance: BOSENTAN
     Indication: PULMONARY HYPERTENSION
     Route: 048
  3. BERAPROST [Concomitant]
     Active Substance: BERAPROST

REACTIONS (3)
  - Chylothorax [Unknown]
  - Tracheomalacia [Unknown]
  - Chronic respiratory disease [Unknown]
